FAERS Safety Report 8104786 (Version 2)
Quarter: 2013Q2

REPORT INFORMATION
  Report Type: Spontaneous
  Country: US (occurrence: US)
  Receive Date: 20110824
  Receipt Date: 20130617
  Transmission Date: 20140414
  Serious: Yes (Hospitalization, Other)
  Sender: FDA-Public Use
  Company Number: US-ELI_LILLY_AND_COMPANY-US201108004828

PATIENT
  Age: 74 Year
  Sex: Female

DRUGS (3)
  1. GEMCITABINE HYDROCHLORIDE [Suspect]
     Indication: PANCREATIC CARCINOMA
     Dosage: UNK
     Route: 042
  2. CEFEPIME [Concomitant]
  3. VANCOMYCIN [Concomitant]

REACTIONS (4)
  - Pseudosepsis [Recovered/Resolved]
  - Cellulitis [Recovering/Resolving]
  - Pulmonary embolism [Recovered/Resolved]
  - Encephalopathy [Recovered/Resolved]
